FAERS Safety Report 13622653 (Version 1)
Quarter: 2017Q2

REPORT INFORMATION
  Report Type: Spontaneous
  Country: FR (occurrence: FR)
  Receive Date: 20170607
  Receipt Date: 20170607
  Transmission Date: 20170830
  Serious: Yes (Hospitalization)
  Sender: FDA-Public Use
  Company Number: FR-VISTAPHARM, INC.-VER201706-000103

PATIENT
  Age: 16 Year
  Sex: Male

DRUGS (2)
  1. VALPROIC ACID. [Suspect]
     Active Substance: VALPROIC ACID
     Indication: CEREBRAL HAEMATOMA
  2. VALPROIC ACID. [Suspect]
     Active Substance: VALPROIC ACID
     Indication: HAEMANGIOMA

REACTIONS (2)
  - Drug intolerance [Recovered/Resolved]
  - Stupor [Recovered/Resolved]
